FAERS Safety Report 23788517 (Version 1)
Quarter: 2024Q2

REPORT INFORMATION
  Report Type: Spontaneous
  Country: US (occurrence: TW)
  Receive Date: 20240426
  Receipt Date: 20240426
  Transmission Date: 20240716
  Serious: No
  Sender: FDA-Public Use
  Company Number: US-PTx-2023000058

PATIENT
  Sex: Female

DRUGS (3)
  1. LEUKINE [Suspect]
     Active Substance: SARGRAMOSTIM
     Indication: Neuroblastoma
     Dosage: 250 MCG FOR 3 DAYS ON DAYS -2-0 VIA SUBCUTANEOUSLY
     Route: 058
     Dates: start: 20230609
  2. LEUKINE [Suspect]
     Active Substance: SARGRAMOSTIM
     Indication: Neuroblastoma
     Dosage: 500 MCG FOR 7 DAYS ON DAYS 1-7 VIA SUBCUTANEOUSLY
     Route: 058
     Dates: end: 20230618
  3. NAXITAMAB [Suspect]
     Active Substance: NAXITAMAB
     Indication: Neuroblastoma
     Dosage: 3 MG/KG
     Route: 065

REACTIONS (2)
  - Pyrexia [Unknown]
  - White blood cell count increased [Unknown]

NARRATIVE: CASE EVENT DATE: 20230612
